FAERS Safety Report 7133574-0 (Version None)
Quarter: 2010Q4

REPORT INFORMATION
  Report Type: 
  Country: None (occurrence: None)
  Receive Date: 20101202
  Receipt Date: 20101123
  Transmission Date: 20110411
  Serious: Yes (Other)
  Sender: FDA-Public Use
  Company Number: DE-GENENTECH-310207

PATIENT
  Sex: Male

DRUGS (2)
  1. MABTHERA [Suspect]
     Indication: MANTLE CELL LYMPHOMA
     Dosage: UNK
     Route: 042
     Dates: end: 20101005
  2. BENDAMUSTINE [Suspect]
     Indication: MANTLE CELL LYMPHOMA
     Dosage: UNK
     Route: 065

REACTIONS (1)
  - PARALYSIS [None]
